FAERS Safety Report 4432132-6 (Version None)
Quarter: 2004Q3

REPORT INFORMATION
  Report Type: 
  Country: None (occurrence: None)
  Receive Date: 20040819
  Receipt Date: 20040803
  Transmission Date: 20050211
  Serious: Yes (Hospitalization)
  Sender: FDA-Public Use
  Company Number: ATO-04-0731

PATIENT
  Age: 81 Year
  Sex: Male
  Weight: 63.2768 kg

DRUGS (6)
  1. TRISENOX [Suspect]
     Indication: MYELODYSPLASTIC SYNDROME
     Dosage: 21.9 MG (0.35 MG/KG,QWK), IVI
     Route: 042
     Dates: start: 20040426, end: 20040726
  2. PRANDIN [Concomitant]
  3. FOLIC ACID [Concomitant]
  4. INSULIN [Concomitant]
  5. PROCRIT [Concomitant]
  6. ADVAIR DISKUS 100/50 [Concomitant]

REACTIONS (2)
  - ATRIAL FIBRILLATION [None]
  - ELECTROCARDIOGRAM QT CORRECTED INTERVAL PROLONGED [None]
